FAERS Safety Report 13636003 (Version 1)
Quarter: 2017Q2

REPORT INFORMATION
  Report Type: Spontaneous
  Country: US (occurrence: US)
  Receive Date: 20170531
  Receipt Date: 20170531
  Transmission Date: 20170830
  Serious: No
  Sender: FDA-Public Use
  Company Number: US-ASTELLAS-1769074

PATIENT
  Sex: Female

DRUGS (13)
  1. SIMVASTATIN. [Concomitant]
     Active Substance: SIMVASTATIN
  2. TARCEVA [Suspect]
     Active Substance: ERLOTINIB HYDROCHLORIDE
     Indication: LUNG NEOPLASM MALIGNANT
     Route: 048
     Dates: start: 20160428
  3. LISINOPRIL. [Concomitant]
     Active Substance: LISINOPRIL
  4. FENOFIBRATE. [Concomitant]
     Active Substance: FENOFIBRATE
  5. WARFARIN [Concomitant]
     Active Substance: WARFARIN
  6. LORAZEPAM. [Concomitant]
     Active Substance: LORAZEPAM
  7. OMEPRAZOLE. [Concomitant]
     Active Substance: OMEPRAZOLE
  8. METFORMIN [Concomitant]
     Active Substance: METFORMIN HYDROCHLORIDE
  9. TRAMADOL. [Concomitant]
     Active Substance: TRAMADOL
  10. LEVOTHROID [Concomitant]
     Active Substance: LEVOTHYROXINE SODIUM
  11. CLONIDINE. [Concomitant]
     Active Substance: CLONIDINE
  12. CHANTIX [Concomitant]
     Active Substance: VARENICLINE TARTRATE
  13. GABAPENTIN. [Concomitant]
     Active Substance: GABAPENTIN

REACTIONS (5)
  - Myalgia [Unknown]
  - Dyspnoea [Unknown]
  - Muscle spasms [Unknown]
  - Rash [Unknown]
  - Dysphonia [Unknown]
